FAERS Safety Report 10471624 (Version 1)
Quarter: 2014Q3

REPORT INFORMATION
  Report Type: Report from Study
  Country: AR (occurrence: AR)
  Receive Date: 20140923
  Receipt Date: 20140923
  Transmission Date: 20150326
  Serious: Yes (Other)
  Sender: FDA-Public Use
  Company Number: PHHY2014AR123964

PATIENT
  Age: 57 Year
  Sex: Male

DRUGS (1)
  1. EXFORGE [Suspect]
     Active Substance: AMLODIPINE BESYLATE\VALSARTAN
     Dosage: 1 DF, DAILY
     Route: 048

REACTIONS (3)
  - Neoplasm malignant [Not Recovered/Not Resolved]
  - Prostate cancer [Not Recovered/Not Resolved]
  - Benign neoplasm [Not Recovered/Not Resolved]

NARRATIVE: CASE EVENT DATE: 201408
